FAERS Safety Report 6628825-2 (Version None)
Quarter: 2010Q1

REPORT INFORMATION
  Report Type: 
  Country: None (occurrence: None)
  Receive Date: 20100311
  Receipt Date: 20100302
  Transmission Date: 20100710
  Serious: Yes (Other)
  Sender: FDA-Public Use
  Company Number: US-MERCK-0706USA00869

PATIENT
  Age: 62 Year
  Sex: Female

DRUGS (6)
  1. FOSAMAX [Suspect]
     Indication: OSTEOPENIA
     Route: 048
     Dates: start: 20010827, end: 20020313
  2. FOSAMAX [Suspect]
     Route: 048
     Dates: start: 20020316, end: 20020930
  3. PREMARIN [Concomitant]
     Indication: HORMONE REPLACEMENT THERAPY
     Route: 065
     Dates: start: 19960101
  4. METROLOTION [Concomitant]
     Indication: ROSACEA
     Route: 065
     Dates: start: 19991101, end: 20020901
  5. PATANOL [Concomitant]
     Indication: EYE ALLERGY
     Route: 065
     Dates: start: 19990901
  6. DYAZIDE [Concomitant]
     Indication: FLUID RETENTION
     Route: 065
     Dates: start: 19960101

REACTIONS (26)
  - ABDOMINAL DISCOMFORT [None]
  - AMALGAM TATTOO [None]
  - BACK PAIN [None]
  - BONE DENSITY DECREASED [None]
  - CARDIAC MURMUR [None]
  - DENTAL CARIES [None]
  - DIARRHOEA [None]
  - EYE INFECTION [None]
  - GASTROINTESTINAL PAIN [None]
  - GASTROOESOPHAGEAL REFLUX DISEASE [None]
  - GINGIVITIS [None]
  - HYPERSENSITIVITY [None]
  - INFLAMMATION [None]
  - LIMB INJURY [None]
  - MUSCLE SPASMS [None]
  - NAUSEA [None]
  - ORAL MUCOSAL ERYTHEMA [None]
  - OSTEOMYELITIS [None]
  - PERIODONTITIS [None]
  - SEBORRHOEA [None]
  - SINUSITIS [None]
  - STOMATITIS [None]
  - TEMPOROMANDIBULAR JOINT SYNDROME [None]
  - TOOTH ABSCESS [None]
  - URTICARIA [None]
  - WOUND INFECTION [None]
